FAERS Safety Report 15807104 (Version 1)
Quarter: 2019Q1

REPORT INFORMATION
  Report Type: Spontaneous
  Country: US (occurrence: US)
  Receive Date: 20190110
  Receipt Date: 20190110
  Transmission Date: 20190417
  Serious: Yes (Death, Other)
  Sender: FDA-Public Use
  Company Number: US-PFIZER INC-2018059506

PATIENT
  Age: 79 Year
  Sex: Male
  Weight: 142 kg

DRUGS (3)
  1. ACETAMINOPHEN;CODEINE [Concomitant]
     Active Substance: ACETAMINOPHEN\CODEINE PHOSPHATE
     Dosage: UNK
  2. LYRICA [Suspect]
     Active Substance: PREGABALIN
     Dosage: 50 MG, DAILY (AS DIRECTED, ONCE)
     Route: 048
     Dates: start: 2018
  3. LYRICA [Suspect]
     Active Substance: PREGABALIN
     Indication: NERVE INJURY
     Dosage: 50 MG, 2X/DAY
     Route: 048
     Dates: start: 20180206, end: 2018

REACTIONS (4)
  - Wrist fracture [Unknown]
  - Fall [Unknown]
  - Head injury [Unknown]
  - Death [Fatal]

NARRATIVE: CASE EVENT DATE: 2018
